FAERS Safety Report 15682020 (Version 1)
Quarter: 2018Q4

REPORT INFORMATION
  Report Type: Spontaneous
  Country: NL (occurrence: NL)
  Receive Date: 20181203
  Receipt Date: 20181203
  Transmission Date: 20190205
  Serious: Yes (Other)
  Sender: FDA-Public Use
  Company Number: NL-IMPAX LABORATORIES, LLC-2018-IPXL-03914

PATIENT
  Age: 60 Year
  Sex: Male

DRUGS (5)
  1. CARBIDOPA-LEVODOPA ER [Suspect]
     Active Substance: CARBIDOPA\LEVODOPA
     Indication: PARKINSON^S DISEASE
     Dosage: UNK
     Route: 048
  2. CARBIDOPA-LEVODOPA ER [Suspect]
     Active Substance: CARBIDOPA\LEVODOPA
     Dosage: 1000 MILLIGRAM, DAILY
     Route: 048
  3. PYRIDOXINE [Suspect]
     Active Substance: PYRIDOXINE
     Indication: VITAMIN B6 DEFICIENCY
     Dosage: 50 TO 100 MG PER DAY
     Route: 065
  4. PYRIDOXINE [Suspect]
     Active Substance: PYRIDOXINE
     Dosage: UNK, DOSE REDUCED
     Route: 065
  5. LEVODOPA/BENSERAZIDE [Suspect]
     Active Substance: BENSERAZIDE\LEVODOPA
     Indication: PARKINSON^S DISEASE
     Dosage: IF NECESSARY 125 MILLIGRAM, DAILY
     Route: 048

REACTIONS (4)
  - Hypervitaminosis [Unknown]
  - Neuropathy peripheral [Recovered/Resolved]
  - Renal impairment [Unknown]
  - Vitamin B6 deficiency [Recovered/Resolved]
